FAERS Safety Report 8297269-2 (Version None)
Quarter: 2012Q1

REPORT INFORMATION
  Report Type: 
  Country: None (occurrence: None)
  Receive Date: 20120322
  Receipt Date: 20111229
  Transmission Date: 20120608
  Serious: Yes (Hospitalization)
  Sender: FDA-Public Use
  Company Number: UTC-014005

PATIENT
  Age: 56 Year
  Sex: Male
  Weight: 86.8 kg

DRUGS (3)
  1. DIURETICS (DIURETICS) [Concomitant]
  2. REVATIO [Concomitant]
  3. TYVASO [Suspect]
     Indication: PULMONARY HYPERTENSION
     Dosage: 216 MCG (54 MCG, 4 IN 1 DD), INHALATION
     Route: 055
     Dates: start: 20110505

REACTIONS (3)
  - METAPLASIA [None]
  - DUODENAL ULCER [None]
  - GASTRITIS [None]
